FAERS Safety Report 16887138 (Version 2)
Quarter: 2019Q4

REPORT INFORMATION
  Report Type: Report from Study
  Country: US (occurrence: US)
  Receive Date: 20191004
  Receipt Date: 20191028
  Transmission Date: 20200122
  Serious: Yes (Other)
  Sender: FDA-Public Use
  Company Number: US-BIOGEN-2019BI00791156

PATIENT
  Sex: Female

DRUGS (4)
  1. HUMIRA [Suspect]
     Active Substance: ADALIMUMAB
     Indication: PRODUCT USED FOR UNKNOWN INDICATION
     Route: 065
  2. TECFIDERA [Suspect]
     Active Substance: DIMETHYL FUMARATE
     Indication: MULTIPLE SCLEROSIS
     Route: 065
     Dates: start: 20190912
  3. PROVIGIL [Concomitant]
     Active Substance: MODAFINIL
     Indication: PRODUCT USED FOR UNKNOWN INDICATION
     Route: 065
  4. TECFIDERA [Suspect]
     Active Substance: DIMETHYL FUMARATE
     Route: 065
     Dates: end: 201910

REACTIONS (10)
  - Ocular hyperaemia [Unknown]
  - Eye swelling [Unknown]
  - Amnesia [Unknown]
  - Urticaria [Recovered/Resolved]
  - Neuralgia [Unknown]
  - Fatigue [Recovered/Resolved]
  - Cognitive disorder [Unknown]
  - Crohn^s disease [Unknown]
  - Asthenia [Recovered/Resolved]
  - Eye pruritus [Unknown]
